FAERS Safety Report 5729437-5 (Version None)
Quarter: 2008Q2

REPORT INFORMATION
  Report Type: 
  Country: None (occurrence: None)
  Receive Date: 20080430
  Receipt Date: 20080215
  Transmission Date: 20081010
  Serious: No
  Sender: FDA-Public Use
  Company Number: 2008PV034289

PATIENT
  Age: 66 Year
  Sex: Female

DRUGS (5)
  1. SYMLIN [Suspect]
     Indication: TYPE 2 DIABETES MELLITUS
     Dosage: 60 MCG;TID;SC
     Route: 058
     Dates: start: 20080214
  2. LANTUS [Concomitant]
  3. MULTI-VITAMINS [Concomitant]
  4. VITAMIN D [Concomitant]
  5. PRILOSEC [Concomitant]

REACTIONS (6)
  - ABDOMINAL PAIN UPPER [None]
  - DIZZINESS [None]
  - FREQUENT BOWEL MOVEMENTS [None]
  - INCORRECT DOSE ADMINISTERED [None]
  - MALAISE [None]
  - TREMOR [None]
